FAERS Safety Report 21814534 (Version 1)
Quarter: 2023Q1

REPORT INFORMATION
  Report Type: Report from Study
  Country: US (occurrence: US)
  Receive Date: 20230104
  Receipt Date: 20230104
  Transmission Date: 20230418
  Serious: Yes (Hospitalization, Other)
  Sender: FDA-Public Use
  Company Number: US-TAKEDA-US201712070

PATIENT
  Sex: Male

DRUGS (8)
  1. TEDUGLUTIDE [Suspect]
     Active Substance: TEDUGLUTIDE
     Indication: Short-bowel syndrome
     Dosage: 3.3 MILLIGRAM, QD
     Route: 058
  2. TEDUGLUTIDE [Suspect]
     Active Substance: TEDUGLUTIDE
     Indication: Short-bowel syndrome
     Dosage: 3.3 MILLIGRAM, QD
     Route: 058
  3. TEDUGLUTIDE [Suspect]
     Active Substance: TEDUGLUTIDE
     Indication: Short-bowel syndrome
     Dosage: 3.3 MILLIGRAM, QD
     Route: 058
  4. TEDUGLUTIDE [Suspect]
     Active Substance: TEDUGLUTIDE
     Indication: Short-bowel syndrome
     Dosage: 3.3 MILLIGRAM, QD
     Route: 058
  5. TEDUGLUTIDE [Suspect]
     Active Substance: TEDUGLUTIDE
     Dosage: 1.6 MILLIGRAM, QD
     Route: 058
     Dates: start: 20160916
  6. TEDUGLUTIDE [Suspect]
     Active Substance: TEDUGLUTIDE
     Dosage: 1.6 MILLIGRAM, QD
     Route: 058
     Dates: start: 20160916
  7. TEDUGLUTIDE [Suspect]
     Active Substance: TEDUGLUTIDE
     Dosage: 1.6 MILLIGRAM, QD
     Route: 058
     Dates: start: 20160916
  8. TEDUGLUTIDE [Suspect]
     Active Substance: TEDUGLUTIDE
     Dosage: 1.6 MILLIGRAM, QD
     Route: 058
     Dates: start: 20160916

REACTIONS (6)
  - Nephrolithiasis [Unknown]
  - Vascular device infection [Unknown]
  - COVID-19 [Unknown]
  - Pyrexia [Unknown]
  - Arthralgia [Unknown]
  - Joint stiffness [Unknown]
